FAERS Safety Report 7777711 (Version 2)
Quarter: 2015Q1

REPORT INFORMATION
  Report Type: Spontaneous
  Country: US (occurrence: US)
  Receive Date: 20110128
  Receipt Date: 20150130
  Transmission Date: 20150721
  Serious: Yes (Life-Threatening, Hospitalization, Disabling, Other)
  Sender: FDA-Public Use
  Company Number: US-BAYER-2010-007153

PATIENT
  Age: 41 Year
  Sex: Female

DRUGS (6)
  1. COSOPT [Concomitant]
     Active Substance: DORZOLAMIDE HYDROCHLORIDE\TIMOLOL MALEATE
     Indication: PRODUCT USED FOR UNKNOWN INDICATION
  2. AVELOX [Suspect]
     Active Substance: MOXIFLOXACIN HYDROCHLORIDE
     Indication: BRONCHITIS
     Dosage: 400 MG, QD
     Dates: end: 20101219
  3. ALPHAGAN P [Concomitant]
     Active Substance: BRIMONIDINE TARTRATE
     Indication: PRODUCT USED FOR UNKNOWN INDICATION
  4. NASONEX [Concomitant]
     Active Substance: MOMETASONE FUROATE
     Indication: BRONCHITIS
     Dosage: UNK UNK, QD
     Route: 045
  5. ASMANEX [Suspect]
     Active Substance: MOMETASONE FUROATE
     Indication: BRONCHITIS
     Dosage: 2 DF, QD
     Route: 055
     Dates: start: 20101217
  6. ORAL CONTRACEPTIVE NOS [Concomitant]
     Active Substance: UNSPECIFIED INGREDIENT

REACTIONS (9)
  - Change of bowel habit [Recovering/Resolving]
  - Rash generalised [Recovering/Resolving]
  - Anaphylactic shock [Unknown]
  - Blood pressure decreased [Recovering/Resolving]
  - Lip swelling [Unknown]
  - Vomiting [Recovering/Resolving]
  - Hot flush [Recovering/Resolving]
  - Abdominal pain [Recovering/Resolving]
  - Oedema peripheral [Unknown]

NARRATIVE: CASE EVENT DATE: 20101217
